FAERS Safety Report 4748787-2 (Version None)
Quarter: 2005Q3

REPORT INFORMATION
  Report Type: 
  Country: None (occurrence: None)
  Receive Date: 20050819
  Receipt Date: 20050812
  Transmission Date: 20060218
  Serious: Yes (Hospitalization)
  Sender: FDA-Public Use
  Company Number: PHBS2005IN11928

PATIENT
  Sex: Male

DRUGS (1)
  1. NEORAL [Suspect]
     Route: 048

REACTIONS (4)
  - DIARRHOEA INFECTIOUS [None]
  - GASTROENTERITIS [None]
  - RENAL IMPAIRMENT [None]
  - RENAL TUBULAR NECROSIS [None]
